FAERS Safety Report 17705020 (Version 17)
Quarter: 2025Q1

REPORT INFORMATION
  Report Type: Spontaneous
  Country: US (occurrence: US)
  Receive Date: 20200424
  Receipt Date: 20250116
  Transmission Date: 20250408
  Serious: Yes (Other)
  Sender: PFIZER
  Company Number: US-PFIZER INC-2020158214

PATIENT
  Age: 67 Year
  Sex: Female
  Weight: 60.78 kg

DRUGS (33)
  1. XELJANZ [Suspect]
     Active Substance: TOFACITINIB CITRATE
     Indication: Rheumatoid arthritis
     Dosage: 5 MG, 2X/DAY
     Route: 048
     Dates: start: 201908
  2. XELJANZ [Suspect]
     Active Substance: TOFACITINIB CITRATE
     Indication: Fibromyalgia
     Dosage: 5 MG, 2X/DAY
     Route: 048
     Dates: start: 201908
  3. XELJANZ [Suspect]
     Active Substance: TOFACITINIB CITRATE
     Indication: Osteoarthritis
  4. XELJANZ [Suspect]
     Active Substance: TOFACITINIB CITRATE
     Indication: Arthritis
  5. TRAMADOL [Concomitant]
     Active Substance: TRAMADOL
     Indication: Pain
  6. TRAMADOL [Concomitant]
     Active Substance: TRAMADOL
     Route: 048
  7. ADVAIR HFA [Concomitant]
     Active Substance: FLUTICASONE PROPIONATE\SALMETEROL XINAFOATE
     Dosage: UNK, 2X/DAY [INHALE 1 PUFF(S)]
  8. ALBUTEROL SULFATE [Concomitant]
     Active Substance: ALBUTEROL SULFATE
     Indication: Wheezing
  9. ALENDRONATE [Concomitant]
     Active Substance: ALENDRONATE SODIUM
     Dosage: AM, FASTING, WITH 8 OS OF WATER. STAY UPRIGHT AND NOT EAT FOR 30 MINUTES AFTER TAKING IT
     Dates: start: 20230227
  10. AZITHROMYCIN [Concomitant]
     Active Substance: AZITHROMYCIN
     Dates: start: 20230224
  11. CLONAZEPAM [Concomitant]
     Active Substance: CLONAZEPAM
     Dosage: 1 MG, DAILY [TAKE 1 TABLET(S) EVERY DAY AT BEDTIME FOR 30 DAYS]
     Route: 048
  12. CYCLOBENZAPRINE [Concomitant]
     Active Substance: CYCLOBENZAPRINE
     Indication: Back pain
     Route: 048
  13. CYCLOBENZAPRINE [Concomitant]
     Active Substance: CYCLOBENZAPRINE
     Indication: Pain in extremity
  14. VITAMIN D2 [Concomitant]
     Active Substance: ERGOCALCIFEROL
     Dosage: 50000 IU, WEEKLY [TAKE 1 CAPSULE(S) FOR 84 DAYS]
     Route: 048
  15. VITAMIN D2 [Concomitant]
     Active Substance: ERGOCALCIFEROL
     Dosage: TAKE 1 CAPSULE(S) EVERY WEEK BY ORAL ROUTE FOR 84 DAYS.
     Route: 048
  16. FOLIC ACID [Concomitant]
     Active Substance: FOLIC ACID
     Indication: Oral pain
     Dosage: 1 MG, DAILY [MAY INCREASE TO 2 TO 3 TABLETS DAILY IF NEEDED]
     Route: 048
  17. GABAPENTIN [Concomitant]
     Active Substance: GABAPENTIN
     Dosage: 900 MG, 1X/DAY [TAKE 1 CAPSULE(S) 3 TIMES A DAY FOR 30 DAYS]
     Route: 048
  18. GABAPENTIN [Concomitant]
     Active Substance: GABAPENTIN
     Dosage: TAKE 1 CAPSULE(S) EVERY DAY BY ORAL ROUTE IN THE MORNING.
     Route: 048
  19. HYDROCHLOROTHIAZIDE [Concomitant]
     Active Substance: HYDROCHLOROTHIAZIDE
     Dosage: TAKE 1 TABLET(S) EVERY DAY BY ORAL ROUTE.
     Route: 048
  20. LINZESS [Concomitant]
     Active Substance: LINACLOTIDE
     Dosage: 145 UG, DAILY
     Route: 048
  21. METHOTREXATE SODIUM [Concomitant]
     Active Substance: METHOTREXATE SODIUM
     Dosage: 17.5 MG, WEEKLY (TAKE 7 TABLETS WITH FOOD)
     Route: 048
  22. METHOTREXATE SODIUM [Concomitant]
     Active Substance: METHOTREXATE SODIUM
     Dosage: 4 TABLETS ON MONDAY AM AND 4 TABLETS ON MONDAY PM WITH FOOD
     Route: 048
     Dates: start: 20220905
  23. PANTOPRAZOLE [Concomitant]
     Active Substance: PANTOPRAZOLE
     Dosage: 40 MG, DAILY [TAKE 1 TABLET(S) EVERY DAY FOR 30 DAYS]
     Route: 048
     Dates: start: 20221117
  24. POTASSIUM CHLORIDE [Concomitant]
     Active Substance: POTASSIUM CHLORIDE
     Dosage: 10 MEQ, 2X/DAY
  25. RELPAX [Concomitant]
     Active Substance: ELETRIPTAN HYDROBROMIDE
     Route: 048
  26. ROPINIROLE [Concomitant]
     Active Substance: ROPINIROLE
  27. SILVER SULFADIAZINE [Concomitant]
     Active Substance: SILVER SULFADIAZINE
     Indication: Thermal burn
     Dosage: 1 %, 2X/DAY [APPLY A 1/16 INCH (1.5 MM) THICK LAYER TO ENTIRE BURN AREA]
     Route: 061
  28. SPIRONOLACTONE [Concomitant]
     Active Substance: SPIRONOLACTONE
  29. SUCRALFATE [Concomitant]
     Active Substance: SUCRALFATE
     Dosage: 1 G, DAILY [TAKE 1 TABLET(S) EVERY DAY FOR 10 DAYS]
     Route: 048
  30. SYMBICORT [Concomitant]
     Active Substance: BUDESONIDE\FORMOTEROL FUMARATE DIHYDRATE
  31. TRIAMCINOLONE ACETONIDE [Concomitant]
     Active Substance: TRIAMCINOLONE ACETONIDE
  32. METFORMIN [Concomitant]
     Active Substance: METFORMIN HYDROCHLORIDE
  33. NALOXONE [Concomitant]
     Active Substance: NALOXONE

REACTIONS (25)
  - Hypokalaemia [Unknown]
  - Blindness [Unknown]
  - Dyspepsia [Recovering/Resolving]
  - Blood pressure abnormal [Unknown]
  - Dyspnoea [Unknown]
  - Dyspnoea exertional [Unknown]
  - Decreased immune responsiveness [Unknown]
  - Dizziness [Unknown]
  - Nausea [Unknown]
  - Headache [Unknown]
  - Tooth infection [Unknown]
  - Feeling abnormal [Unknown]
  - Bone pain [Unknown]
  - Drug hypersensitivity [Unknown]
  - Condition aggravated [Unknown]
  - Malaise [Unknown]
  - Fall [Unknown]
  - Arthralgia [Unknown]
  - Nasopharyngitis [Unknown]
  - Overweight [Unknown]
  - Stomatitis [Unknown]
  - Pyrexia [Recovered/Resolved]
  - Lip blister [Not Recovered/Not Resolved]
  - Oral mucosal blistering [Recovering/Resolving]
  - Illness [Unknown]

NARRATIVE: CASE EVENT DATE: 20200401
